FAERS Safety Report 5591849-0 (Version None)
Quarter: 2008Q1

REPORT INFORMATION
  Report Type: 
  Country: None (occurrence: None)
  Receive Date: 20080115
  Receipt Date: 20080108
  Transmission Date: 20080703
  Serious: Yes (Other)
  Sender: FDA-Public Use
  Company Number: B0502509A

PATIENT
  Age: 20 Year
  Sex: Female

DRUGS (1)
  1. PAROXETINE HYDROCHLORIDE [Suspect]
     Indication: DRUG USE FOR UNKNOWN INDICATION
     Dosage: 20MG PER DAY
     Route: 065
     Dates: start: 20061201

REACTIONS (4)
  - AGGRESSION [None]
  - FRUSTRATION [None]
  - ILL-DEFINED DISORDER [None]
  - PERSONALITY CHANGE [None]
